FAERS Safety Report 4832707-6 (Version None)
Quarter: 2005Q4

REPORT INFORMATION
  Report Type: 
  Country: None (occurrence: None)
  Receive Date: 20051121
  Receipt Date: 20051113
  Transmission Date: 20060501
  Serious: Yes (Hospitalization)
  Sender: FDA-Public Use
  Company Number: DE-AVENTIS-200512581DE

PATIENT
  Age: 46 Year
  Sex: Female

DRUGS (2)
  1. KETEK [Suspect]
     Indication: RESPIRATORY TRACT INFECTION
     Route: 048
     Dates: start: 20051110, end: 20051110
  2. CEPHALOSPORINS AND RELATED SUBSTANCES [Concomitant]

REACTIONS (4)
  - BLOOD PRESSURE INCREASED [None]
  - PRURITUS [None]
  - RASH [None]
  - TACHYCARDIA [None]
